FAERS Safety Report 14719959 (Version 2)
Quarter: 2018Q2

REPORT INFORMATION
  Report Type: Spontaneous
  Country: FR (occurrence: FR)
  Receive Date: 20180405
  Receipt Date: 20180509
  Transmission Date: 20180711
  Serious: Yes (Other)
  Sender: FDA-Public Use
  Company Number: PHHY2018FR058301

PATIENT
  Age: 81 Year
  Sex: Male

DRUGS (2)
  1. TACROLIMUS. [Suspect]
     Active Substance: TACROLIMUS
     Indication: RENAL TRANSPLANT
     Dosage: 4 MG, UNK
     Route: 065
     Dates: start: 20170711
  2. CELLCEPT [Concomitant]
     Active Substance: MYCOPHENOLATE MOFETIL\MYCOPHENOLATE MOFETIL HYDROCHLORIDE
     Indication: TRANSPLANT REJECTION
     Dosage: UNK (500 UNK TOTAL DAILY DOSE)
     Route: 065

REACTIONS (2)
  - Haematuria [Recovered/Resolved]
  - Arteriovenous fistula thrombosis [Recovered/Resolved]

NARRATIVE: CASE EVENT DATE: 20170713
